FAERS Safety Report 6570973-X (Version None)
Quarter: 2010Q1

REPORT INFORMATION
  Report Type: 
  Country: None (occurrence: None)
  Receive Date: 20100204
  Receipt Date: 20100121
  Transmission Date: 20100710
  Serious: Yes (Death, Hospitalization)
  Sender: FDA-Public Use
  Company Number: PHHY2009JP29012

PATIENT
  Sex: Male
  Weight: 58 kg

DRUGS (8)
  1. AMN107 AMN+CAP [Suspect]
     Indication: CHRONIC MYELOID LEUKAEMIA
     Dosage: 400 MG/DAY
     Route: 048
     Dates: start: 20060901, end: 20090301
  2. AMN107 AMN+CAP [Suspect]
     Dosage: 400 MG/DAY
     Route: 048
     Dates: start: 20090414, end: 20090623
  3. MUCOSTA [Concomitant]
     Indication: CHRONIC MYELOID LEUKAEMIA
     Dosage: 300 MG, UNK
     Route: 048
     Dates: start: 20090414, end: 20090623
  4. AMLODIPINE [Concomitant]
     Dosage: 5 MG, UNK
     Route: 048
     Dates: start: 20090414, end: 20090623
  5. FRANDOL [Concomitant]
     Dosage: 40 MG, UNK
     Dates: start: 20090414, end: 20090623
  6. MEVALOTIN [Concomitant]
     Dosage: 10 MG, UNK
     Dates: start: 20090414, end: 20090623
  7. PELTAZON [Concomitant]
     Dosage: 50 MG, UNK
     Dates: start: 20090414, end: 20090623
  8. AMOBAN [Concomitant]
     Dosage: 7.5 MG, UNK
     Route: 048
     Dates: start: 20090414, end: 20090623

REACTIONS (18)
  - ARTERIAL BYPASS OPERATION [None]
  - ARTERIAL HAEMORRHAGE [None]
  - ARTERIOSCLEROSIS OBLITERANS [None]
  - CONCOMITANT DISEASE PROGRESSION [None]
  - ELECTROCARDIOGRAM ABNORMAL [None]
  - ELECTROCARDIOGRAM ST SEGMENT DEPRESSION [None]
  - GRAFT COMPLICATION [None]
  - HAEMOSTASIS [None]
  - LEG AMPUTATION [None]
  - LYMPHORRHOEA [None]
  - MYOCARDIAL INFARCTION [None]
  - NASOPHARYNGITIS [None]
  - NEOPLASM [None]
  - PERIPHERAL REVASCULARISATION [None]
  - POST PROCEDURAL COMPLICATION [None]
  - PYREXIA [None]
  - THROMBECTOMY [None]
  - TROPONIN I INCREASED [None]
